FAERS Safety Report 7291145-X (Version None)
Quarter: 2011Q1

REPORT INFORMATION
  Report Type: 
  Country: None (occurrence: None)
  Receive Date: 20110202
  Receipt Date: 20110122
  Transmission Date: 20110831
  Serious: Yes (Hospitalization, Other)
  Sender: FDA-Public Use
  Company Number: 2011SP003939

PATIENT
  Sex: Male

DRUGS (5)
  1. LIPITOR [Concomitant]
  2. NITROGLYCERIN [Concomitant]
  3. CLARITIN [Suspect]
     Indication: DIZZINESS
     Dosage: 10 MG;QD;PO
     Route: 048
     Dates: start: 20110101
  4. AVAPRO [Concomitant]
  5. LASIX [Concomitant]

REACTIONS (4)
  - BLOOD PRESSURE INCREASED [None]
  - MALAISE [None]
  - CHEST PAIN [None]
  - LOSS OF CONSCIOUSNESS [None]
